FAERS Safety Report 16142212 (Version 5)
Quarter: 2019Q3

REPORT INFORMATION
  Report Type: Report from Study
  Country: US (occurrence: US)
  Receive Date: 20190401
  Receipt Date: 20190917
  Transmission Date: 20191004
  Serious: Yes (Other)
  Sender: FDA-Public Use
  Company Number: US-ALEXION PHARMACEUTICALS INC.-A201904732

PATIENT
  Sex: Female

DRUGS (2)
  1. SOLIRIS [Suspect]
     Active Substance: ECULIZUMAB
     Indication: MYASTHENIA GRAVIS
     Dosage: UNK
     Route: 065
  2. SOLIRIS [Suspect]
     Active Substance: ECULIZUMAB
     Dosage: 1200 MG, Q2W
     Route: 042

REACTIONS (7)
  - Salivary hypersecretion [Unknown]
  - Aspiration [Unknown]
  - Secretion discharge [Unknown]
  - Muscular weakness [Unknown]
  - Feeling abnormal [Unknown]
  - Dysphagia [Unknown]
  - Upper respiratory tract infection [Unknown]
